FAERS Safety Report 10793510 (Version 2)
Quarter: 2015Q1

REPORT INFORMATION
  Report Type: Report from Study
  Country: US (occurrence: US)
  Receive Date: 20150213
  Receipt Date: 20150216
  Transmission Date: 20150721
  Serious: Yes (Other)
  Sender: FDA-Public Use
  Company Number: US-ABBVIE-15P-163-1346614-00

PATIENT
  Age: 24 Year
  Sex: Female
  Weight: 79.45 kg

DRUGS (5)
  1. LUPRON DEPOT [Suspect]
     Active Substance: LEUPROLIDE ACETATE
     Indication: ENDOMETRIOSIS
     Route: 030
     Dates: start: 200507, end: 200604
  2. SEASONIQUE [Concomitant]
     Active Substance: ETHINYL ESTRADIOL\LEVONORGESTREL
     Indication: MENORRHAGIA
     Dates: start: 2006
  3. IMPLANON [Concomitant]
     Active Substance: ETONOGESTREL
     Indication: MENORRHAGIA
  4. DEPO-PROVERA [Concomitant]
     Active Substance: MEDROXYPROGESTERONE ACETATE
     Indication: MENORRHAGIA
     Dates: start: 2007
  5. DEPO-PROVERA [Concomitant]
     Active Substance: MEDROXYPROGESTERONE ACETATE
     Dates: start: 2014, end: 2014

REACTIONS (11)
  - Thrombosis [Recovering/Resolving]
  - Abdominal adhesions [Not Recovered/Not Resolved]
  - Weight increased [Not Recovered/Not Resolved]
  - Eclampsia [Recovered/Resolved]
  - Pelvic haematoma [Recovering/Resolving]
  - Weight increased [Recovered/Resolved]
  - Prolonged labour [Recovered/Resolved]
  - Fungal infection [Recovered/Resolved]
  - Amniotic fluid volume decreased [Recovered/Resolved]
  - Endometriosis [Not Recovered/Not Resolved]
  - Intra-abdominal haematoma [Recovering/Resolving]

NARRATIVE: CASE EVENT DATE: 2007
